FAERS Safety Report 21376239 (Version 1)
Quarter: 2022Q3

REPORT INFORMATION
  Report Type: Report from Study
  Country: US (occurrence: US)
  Receive Date: 20220926
  Receipt Date: 20220926
  Transmission Date: 20221027
  Serious: Yes (Other)
  Sender: FDA-Public Use
  Company Number: US-NOVARTISTESTPH-NVSC2022US215873

PATIENT
  Sex: Female
  Weight: 75.737 kg

DRUGS (1)
  1. TREPROSTINIL [Suspect]
     Active Substance: TREPROSTINIL
     Indication: Pulmonary arterial hypertension
     Dosage: 98 NG/KG/MIN, CONT
     Route: 058
     Dates: start: 20220818

REACTIONS (4)
  - Pulmonary hypertension [Not Recovered/Not Resolved]
  - Alopecia [Unknown]
  - Dyspnoea [Unknown]
  - Infusion site haemorrhage [Not Recovered/Not Resolved]
